FAERS Safety Report 9603140 (Version 1)
Quarter: 2013Q4

REPORT INFORMATION
  Report Type: Report from Study
  Country: BR (occurrence: BR)
  Receive Date: 20131007
  Receipt Date: 20131007
  Transmission Date: 20140711
  Serious: Yes (Other)
  Sender: FDA-Public Use
  Company Number: BR-BAYER-2013-118588

PATIENT
  Age: 53 Year
  Sex: Male
  Weight: 78 kg

DRUGS (4)
  1. NEXAVAR [Suspect]
     Indication: HEPATIC CANCER
     Dosage: 2 DF, BID
     Route: 048
     Dates: start: 201306, end: 201309
  2. MORPHINE [Concomitant]
     Indication: BONE PAIN
     Dosage: 1 DF, Q4HR
     Route: 048
     Dates: start: 201306
  3. DEXAMETHASONE [Concomitant]
     Indication: PAIN
     Dosage: 1 DF, QID
     Route: 048
     Dates: start: 201306
  4. AMITRIPTYLINE [Concomitant]
     Indication: PAIN
     Dosage: 1 DF, BID
     Route: 048
     Dates: start: 201306

REACTIONS (5)
  - Weight decreased [Recovered/Resolved]
  - Neoplasm progression [Not Recovered/Not Resolved]
  - Metastases to bone [Not Recovered/Not Resolved]
  - Asthenia [Recovered/Resolved]
  - Decreased appetite [Recovered/Resolved]
